FAERS Safety Report 26156967 (Version 1)
Quarter: 2025Q4

REPORT INFORMATION
  Report Type: Spontaneous
  Country: US (occurrence: US)
  Receive Date: 20251215
  Receipt Date: 20251215
  Transmission Date: 20260117
  Serious: No
  Sender: ALCON
  Company Number: US-ALCON LABORATORIES-ALC2025US006979

PATIENT
  Age: 55 Year
  Sex: Male

DRUGS (1)
  1. ACOLTREMON [Suspect]
     Active Substance: ACOLTREMON
     Indication: Dry eye
     Dosage: INSTILL 1 DROP INTO BOTH EYES 2 TIMES A DAY
     Route: 047
     Dates: start: 20251029, end: 20251107

REACTIONS (2)
  - Drug ineffective [Unknown]
  - Burning sensation [Recovered/Resolved]
